FAERS Safety Report 6715194 (Version 25)
Quarter: 2014Q1

REPORT INFORMATION
  Report Type: Spontaneous
  Country: US (occurrence: US)
  Receive Date: 20080731
  Receipt Date: 20140327
  Transmission Date: 20141002
  Serious: Yes (Death, Other)
  Sender: FDA-Public Use
  Company Number: PHEH2008US06597

PATIENT
  Sex: Female

DRUGS (36)
  1. ZOMETA [Suspect]
     Indication: OSTEOPOROSIS PROPHYLAXIS
     Route: 042
     Dates: start: 200601, end: 200608
  2. FOSAMAX [Suspect]
     Dates: start: 200312, end: 200509
  3. OXYCODONE [Concomitant]
     Dosage: 20 MG, UNK
  4. OXYCODONE [Concomitant]
     Dosage: 10 MG, UNK
  5. OXYCODONE [Concomitant]
     Dosage: 40 MG, UNK
  6. OXYCODONE W/PARACETAMOL [Concomitant]
     Dosage: 1 DF, UNK
  7. HYDROCODONE W/PARACETAMOL [Concomitant]
     Dosage: 1 DF, UNK
  8. HYDROCODONE W/PARACETAMOL [Concomitant]
     Dosage: 7.5 MG, UNK
  9. AMOXICILLIN [Concomitant]
     Dosage: 500 MG, UNK
  10. CITALOPRAM [Concomitant]
     Dosage: 20 MG, UNK
  11. CYCLOBENZAPRINE [Concomitant]
     Dosage: 10 MG, UNK
  12. LORAZEPAM [Concomitant]
     Dosage: 1 MG, UNK
  13. LORAZEPAM [Concomitant]
     Dosage: 0.5 MG, UNK
  14. NAPROXEN [Concomitant]
     Dosage: 500 MG, UNK
  15. NAPROXEN SODIUM [Concomitant]
     Dosage: 550 MG, UNK
  16. IBUPROFEN [Concomitant]
     Dosage: 800 MG, UNK
  17. DIAZEPAM [Concomitant]
     Dosage: 5 MG, UNK
  18. TAMOXIFEN [Concomitant]
     Dosage: 10 MG, UNK
  19. CEPHALEXIN [Concomitant]
     Dosage: 500 MG, UNK
  20. LEVAQUIN [Concomitant]
     Dosage: 500 MG, UNK
  21. AMBIEN [Concomitant]
     Dosage: 5 MG, UNK
  22. OCUFLOX [Concomitant]
     Dosage: 0.3 %, UNK
  23. MEGESTROL ACETATE [Concomitant]
     Dosage: 40 MG, UNK
  24. EFFEXOR-XR [Concomitant]
     Dosage: 37.5 MG, UNK
  25. PHENERGAN ^AVENTIS PHARMA^ [Concomitant]
     Dosage: 25 MG
  26. METHYLPREDNISOLONE [Concomitant]
     Dosage: 4 MG
  27. CHLORHEXIDINE [Concomitant]
     Dosage: 0.12 %
  28. PENICILLIN VK [Concomitant]
     Dosage: 500 MG
  29. AVELOX [Concomitant]
  30. ATIVAN [Concomitant]
  31. OXYCONTIN [Concomitant]
  32. VICODIN [Concomitant]
  33. HERCEPTIN ^GENENTECH^ [Concomitant]
  34. TYLENOL [Concomitant]
  35. ADVIL [Concomitant]
  36. NEURONTIN [Concomitant]

REACTIONS (71)
  - Death [Fatal]
  - Osteonecrosis of jaw [Recovered/Resolved]
  - Injury [Unknown]
  - Pain [Unknown]
  - Anxiety [Unknown]
  - Osteolysis [Unknown]
  - Decreased interest [Unknown]
  - Edentulous [Unknown]
  - Foramen magnum stenosis [Unknown]
  - Metastases to bone [Unknown]
  - Metastases to skin [Unknown]
  - Paraesthesia oral [Unknown]
  - Metastases to lymph nodes [Unknown]
  - Atelectasis [Unknown]
  - Intervertebral disc protrusion [Unknown]
  - Spondylolysis [Unknown]
  - Sinusitis [Unknown]
  - Drug abuse [Unknown]
  - Pain in jaw [Unknown]
  - Radicular pain [Unknown]
  - Diarrhoea [Unknown]
  - Nasopharyngitis [Unknown]
  - Back pain [Unknown]
  - Neck pain [Unknown]
  - Muscular weakness [Unknown]
  - Vertebral foraminal stenosis [Unknown]
  - Arthropathy [Unknown]
  - Pain in extremity [Unknown]
  - Pelvic pain [Unknown]
  - Paraesthesia [Recovering/Resolving]
  - Carpal tunnel syndrome [Unknown]
  - Femur fracture [Unknown]
  - Osteoarthritis [Unknown]
  - Metastases to spine [Unknown]
  - Metastases to pelvis [Unknown]
  - Metastases to central nervous system [Unknown]
  - Radiation fibrosis - lung [Unknown]
  - Protrusion tongue [Unknown]
  - Lordosis [Unknown]
  - Vision blurred [Unknown]
  - Tendonitis [Unknown]
  - Hepatomegaly [Unknown]
  - Oedema [Unknown]
  - Oesophagitis [Unknown]
  - Spinal osteoarthritis [Unknown]
  - Pleural effusion [Unknown]
  - Mitral valve incompetence [Unknown]
  - Tricuspid valve prolapse [Unknown]
  - Tricuspid valve incompetence [Unknown]
  - Pericardial effusion [Unknown]
  - Dyspnoea [Unknown]
  - Chronic obstructive pulmonary disease [Unknown]
  - Pneumonia [Unknown]
  - Ventricular hypertrophy [Unknown]
  - Hypoxia [Unknown]
  - Respiratory distress [Unknown]
  - Tachycardia [Unknown]
  - Hypotension [Unknown]
  - Deep vein thrombosis [Unknown]
  - Orthopnoea [Unknown]
  - Respiratory failure [Unknown]
  - Lung cancer metastatic [Unknown]
  - Brain oedema [Unknown]
  - Brain cancer metastatic [Unknown]
  - Malignant neoplasm progression [Unknown]
  - Central nervous system lesion [Unknown]
  - Arterial occlusive disease [Unknown]
  - Dehydration [Unknown]
  - Cough [Unknown]
  - Increased upper airway secretion [Unknown]
  - Oedema peripheral [Unknown]
